FAERS Safety Report 5224762-9 (Version None)
Quarter: 2007Q1

REPORT INFORMATION
  Report Type: 
  Country: None (occurrence: None)
  Receive Date: 20070129
  Receipt Date: 20070129
  Transmission Date: 20070707
  Serious: No
  Sender: FDA-Public Use
  Company Number: None

PATIENT
  Age: 48 Year
  Sex: Female
  Weight: 70.3075 kg

DRUGS (2)
  1. TRAMADOL HCL [Suspect]
     Indication: MUSCULOSKELETAL PAIN
     Dosage: 1 TABLET 4-6 HOURS PO
     Route: 048
     Dates: start: 20070126, end: 20070127
  2. TRAMADOL HCL [Suspect]
     Indication: NERVE COMPRESSION
     Dosage: 1 TABLET 4-6 HOURS PO
     Route: 048
     Dates: start: 20070126, end: 20070127

REACTIONS (11)
  - DISORIENTATION [None]
  - DIZZINESS [None]
  - FEELING ABNORMAL [None]
  - FEELING HOT [None]
  - FLUSHING [None]
  - HEADACHE [None]
  - HEART RATE INCREASED [None]
  - INSOMNIA [None]
  - MALAISE [None]
  - NAUSEA [None]
  - PRURITUS [None]
